FAERS Safety Report 17256191 (Version 1)
Quarter: 2020Q1

REPORT INFORMATION
  Report Type: Spontaneous
  Country: DE (occurrence: DE)
  Receive Date: 20200110
  Receipt Date: 20200110
  Transmission Date: 20200409
  Serious: Yes (Other)
  Sender: FDA-Public Use
  Company Number: DE-GLAXOSMITHKLINE-DE2020004557

PATIENT
  Age: 20 Year
  Sex: Female
  Weight: 63 kg

DRUGS (1)
  1. DUAC [Suspect]
     Active Substance: BENZOYL PEROXIDE\CLINDAMYCIN PHOSPHATE
     Indication: ACNE
     Dosage: APPLY THINLY ONCE A DAY
     Route: 061
     Dates: start: 20191230, end: 20191230

REACTIONS (7)
  - Circulatory collapse [Not Recovered/Not Resolved]
  - Pain of skin [Unknown]
  - Tremor [Not Recovered/Not Resolved]
  - Adverse reaction [Unknown]
  - Pharyngeal swelling [Not Recovered/Not Resolved]
  - Urticaria [Not Recovered/Not Resolved]
  - Swelling face [Not Recovered/Not Resolved]

NARRATIVE: CASE EVENT DATE: 20191231
